FAERS Safety Report 20291440 (Version 1)
Quarter: 2022Q1

REPORT INFORMATION
  Report Type: Spontaneous
  Country: US (occurrence: US)
  Receive Date: 20220104
  Receipt Date: 20220104
  Transmission Date: 20220423
  Serious: Yes (Other)
  Sender: FDA-Public Use
  Company Number: US-TEVA-2021-US-1993688

PATIENT
  Age: 79 Year
  Sex: Male
  Weight: 111.13 kg

DRUGS (1)
  1. RASAGILINE [Suspect]
     Active Substance: RASAGILINE
     Indication: Parkinson^s disease
     Dosage: 1 MILLIGRAM DAILY;
     Route: 065

REACTIONS (6)
  - Haemorrhagic stroke [Unknown]
  - Normal pressure hydrocephalus [Unknown]
  - Urinary tract infection [Unknown]
  - Weight increased [Unknown]
  - Erythema [Unknown]
  - Mental disorder [Unknown]

NARRATIVE: CASE EVENT DATE: 20150101
